FAERS Safety Report 19034742 (Version 1)
Quarter: 2021Q1

REPORT INFORMATION
  Report Type: Report from Study
  Country: None (occurrence: US)
  Receive Date: 20210319
  Receipt Date: 20210319
  Transmission Date: 20210420
  Serious: Yes (Other)
  Sender: FDA-Public Use
  Company Number: US-ABBVIE-20K-163-3696904-00

PATIENT
  Age: 69 Year
  Sex: Female
  Weight: 94.43 kg

DRUGS (2)
  1. DOXYCYCLINE. [Concomitant]
     Active Substance: DOXYCYCLINE
     Indication: ANTIBIOTIC THERAPY
  2. HUMIRA [Suspect]
     Active Substance: ADALIMUMAB
     Indication: HIDRADENITIS
     Dosage: CITRATE FREE
     Route: 058

REACTIONS (7)
  - Drug ineffective [Unknown]
  - Hidradenitis [Not Recovered/Not Resolved]
  - Infection [Unknown]
  - Eye operation [Unknown]
  - Rotator cuff syndrome [Unknown]
  - Pain [Unknown]
  - Abscess oral [Unknown]

NARRATIVE: CASE EVENT DATE: 202010
